FAERS Safety Report 20830813 (Version 1)
Quarter: 2022Q2

REPORT INFORMATION
  Report Type: Spontaneous
  Country: FR (occurrence: FR)
  Receive Date: 20220515
  Receipt Date: 20220515
  Transmission Date: 20220721
  Serious: Yes (Death, Hospitalization)
  Sender: FDA-Public Use
  Company Number: None

PATIENT
  Age: 59 Year
  Sex: Male
  Weight: 55 kg

DRUGS (5)
  1. DOXORUBICIN [Suspect]
     Active Substance: DOXORUBICIN
     Indication: Chemotherapy
     Dosage: UNIT DOSE 94MG,FREQUENCY TIME 1 TOTAL,DURATION 1 DAYS
     Route: 042
     Dates: start: 20220404, end: 20220404
  2. PANTOPRAZOLE [Concomitant]
     Active Substance: PANTOPRAZOLE
  3. SMECTA [Concomitant]
     Active Substance: MONTMORILLONITE
  4. SKENAN [Concomitant]
     Active Substance: MORPHINE SULFATE
  5. MORPHINE SULFATE [Concomitant]
     Active Substance: MORPHINE SULFATE

REACTIONS (3)
  - Confusional state [Not Recovered/Not Resolved]
  - Respiratory distress [Fatal]
  - Melaena [Fatal]

NARRATIVE: CASE EVENT DATE: 20220407
